FAERS Safety Report 10289861 (Version 2)
Quarter: 2014Q3

REPORT INFORMATION
  Report Type: Spontaneous
  Country: ES (occurrence: ES)
  Receive Date: 20140710
  Receipt Date: 20140715
  Transmission Date: 20150326
  Serious: Yes (Hospitalization)
  Sender: FDA-Public Use
  Company Number: ES-BAYER-2014-099862

PATIENT
  Age: 79 Year
  Sex: Female

DRUGS (3)
  1. ASPIRINA [Suspect]
     Active Substance: ASPIRIN
     Indication: PAIN
     Dosage: 500 MG, ABOUT 5 ASPIRINS PER MONTH
     Route: 048
     Dates: start: 2012, end: 20131004
  2. ACREL [Suspect]
     Active Substance: RISEDRONATE SODIUM
     Indication: OSTEOPOROSIS
     Dosage: 75 MG, Q2WK
     Route: 048
     Dates: start: 201209, end: 201309
  3. OMEPRAZOL [Concomitant]
     Active Substance: OMEPRAZOLE
     Indication: HIATUS HERNIA
     Dosage: 20 MG, QD
     Route: 048
     Dates: start: 2012, end: 20131004

REACTIONS (2)
  - Anaemia [Recovering/Resolving]
  - Gastric ulcer [Recovered/Resolved]

NARRATIVE: CASE EVENT DATE: 20131004
